FAERS Safety Report 10916439 (Version 1)
Quarter: 2015Q1

REPORT INFORMATION
  Report Type: Spontaneous
  Country: GB (occurrence: GB)
  Receive Date: 20150316
  Receipt Date: 20150316
  Transmission Date: 20150721
  Serious: Yes (Other)
  Sender: FDA-Public Use
  Company Number: GB-WATSON-2015-04755

PATIENT
  Age: 20 Year
  Sex: Female
  Weight: 60 kg

DRUGS (1)
  1. SERTRALINE [Suspect]
     Active Substance: SERTRALINE HYDROCHLORIDE
     Indication: DEPRESSION
     Dosage: 50 MG, UNKNOWN
     Route: 048
     Dates: start: 20150204, end: 20150205

REACTIONS (3)
  - Loss of consciousness [Recovering/Resolving]
  - Seizure [Recovering/Resolving]
  - Dystonia [Recovering/Resolving]

NARRATIVE: CASE EVENT DATE: 20150205
